FAERS Safety Report 17185710 (Version 1)
Quarter: 2019Q4

REPORT INFORMATION
  Report Type: Spontaneous
  Country: FR (occurrence: FR)
  Receive Date: 20191220
  Receipt Date: 20191220
  Transmission Date: 20200122
  Serious: Yes (Hospitalization)
  Sender: FDA-Public Use
  Company Number: FR-MYLANLABS-2019M1125700

PATIENT
  Age: 61 Year
  Sex: Male
  Weight: 74.9 kg

DRUGS (10)
  1. PIPERACILLIN AND TAZOBACTAM [Suspect]
     Active Substance: PIPERACILLIN SODIUM\TAZOBACTAM SODIUM
     Indication: CELLULITIS
     Dosage: 12 GRAM, QD
     Route: 042
     Dates: start: 20160518
  2. CREON [Concomitant]
     Active Substance: PANCRELIPASE AMYLASE\PANCRELIPASE LIPASE\PANCRELIPASE PROTEASE
     Dosage: UNK
  3. PROPRANOLOL [Concomitant]
     Active Substance: PROPRANOLOL HYDROCHLORIDE
     Dosage: UNK
  4. OMEPRAZOLE MYLAN 40 MG, POUDRE POUR SOLUTION POUR PERFUSION [Suspect]
     Active Substance: OMEPRAZOLE
     Indication: STRESS ULCER
     Dosage: 40 MILLIGRAM
     Route: 042
     Dates: start: 20160518
  5. ONDANSETRON [Concomitant]
     Active Substance: ONDANSETRON
     Dosage: UNK
  6. LASILIX                            /00032601/ [Concomitant]
     Active Substance: FUROSEMIDE
     Dosage: UNK
  7. NOVORAPID [Concomitant]
     Active Substance: INSULIN ASPART
     Dosage: UNK
  8. MORPHINE [Concomitant]
     Active Substance: MORPHINE
     Dosage: UNK
  9. TIXTAR [Concomitant]
     Active Substance: RIFAXIMIN
     Dosage: UNK
  10. PERINDOPRIL ERBUMINE. [Concomitant]
     Active Substance: PERINDOPRIL ERBUMINE
     Dosage: UNK

REACTIONS (2)
  - Pseudomembranous colitis [Recovering/Resolving]
  - Diarrhoea [Recovering/Resolving]

NARRATIVE: CASE EVENT DATE: 201605
